FAERS Safety Report 7374532-0 (Version None)
Quarter: 2011Q1

REPORT INFORMATION
  Report Type: 
  Country: None (occurrence: None)
  Receive Date: 20110325
  Receipt Date: 20100220
  Transmission Date: 20110831
  Serious: No
  Sender: FDA-Public Use
  Company Number: US-MYLANLABS-2010S1002916

PATIENT
  Age: 73 Year
  Sex: Male
  Weight: 99.79 kg

DRUGS (10)
  1. CALCIUM [Concomitant]
     Route: 048
  2. LISINOPRIL [Concomitant]
     Route: 048
  3. NITROGLYCERIN [Concomitant]
     Route: 062
  4. ASPIRIN [Concomitant]
     Route: 048
  5. GABAPENTIN [Concomitant]
     Route: 048
  6. FENTANYL-100 [Suspect]
     Indication: BACK PAIN
     Dosage: Q 72 HOURS
     Route: 062
  7. METFORMIN [Concomitant]
     Route: 048
  8. LORAZEPAM [Concomitant]
     Route: 048
  9. SERTRALINE HYDROCHLORIDE [Concomitant]
     Route: 048
  10. FISH OIL [Concomitant]

REACTIONS (4)
  - HYPERHIDROSIS [None]
  - DRUG EFFECT DECREASED [None]
  - BACK PAIN [None]
  - CHILLS [None]
